FAERS Safety Report 5373031-5 (Version None)
Quarter: 2007Q2

REPORT INFORMATION
  Report Type: 
  Country: None (occurrence: None)
  Receive Date: 20070619
  Receipt Date: 20070322
  Transmission Date: 20071010
  Serious: No
  Sender: FDA-Public Use
  Company Number: 2007US000848

PATIENT
  Sex: Female

DRUGS (4)
  1. VESICARE [Suspect]
     Indication: HYPERTONIC BLADDER
     Dosage: 5 MG
     Dates: start: 20061001
  2. ARIMIDEX [Concomitant]
  3. SYNTHROID [Concomitant]
  4. ANTIHYPERTENSIVES [Concomitant]

REACTIONS (3)
  - DIARRHOEA [None]
  - GASTRIC DISORDER [None]
  - PHARYNGEAL OEDEMA [None]
